FAERS Safety Report 15997515 (Version 1)
Quarter: 2019Q1

REPORT INFORMATION
  Report Type: Spontaneous
  Country: JP (occurrence: JP)
  Receive Date: 20190222
  Receipt Date: 20190222
  Transmission Date: 20190418
  Serious: Yes (Hospitalization, Other)
  Sender: FDA-Public Use
  Company Number: JP-JNJFOC-20181001164

PATIENT
  Age: 46 Year
  Sex: Male

DRUGS (12)
  1. RISPERDAL [Suspect]
     Active Substance: RISPERIDONE
     Indication: SCHIZOPHRENIA
     Route: 048
     Dates: start: 2014
  2. RISPERDAL [Suspect]
     Active Substance: RISPERIDONE
     Indication: SCHIZOPHRENIA
     Route: 048
     Dates: end: 20180829
  3. NELBON [Concomitant]
     Active Substance: NITRAZEPAM
     Indication: SCHIZOPHRENIA
     Route: 048
     Dates: end: 20180913
  4. TEGRETOL [Concomitant]
     Active Substance: CARBAMAZEPINE
     Indication: SCHIZOPHRENIA
     Route: 048
     Dates: end: 20180913
  5. TEGRETOL [Concomitant]
     Active Substance: CARBAMAZEPINE
     Indication: SCHIZOPHRENIA
     Route: 048
     Dates: start: 20180927
  6. NELBON [Concomitant]
     Active Substance: NITRAZEPAM
     Indication: SCHIZOPHRENIA
     Route: 048
     Dates: start: 20180927
  7. LONASEN [Concomitant]
     Active Substance: BLONANSERIN
     Indication: SCHIZOPHRENIA
     Route: 048
     Dates: start: 20180918
  8. INVEGA [Suspect]
     Active Substance: PALIPERIDONE
     Indication: SCHIZOPHRENIA
     Route: 048
     Dates: start: 2012
  9. INVEGA [Suspect]
     Active Substance: PALIPERIDONE
     Indication: SCHIZOPHRENIA
     Route: 048
     Dates: start: 20180831, end: 20180913
  10. RISPERDAL [Suspect]
     Active Substance: RISPERIDONE
     Indication: SCHIZOPHRENIA
     Route: 048
     Dates: start: 20180830, end: 20180913
  11. RISPERDAL [Suspect]
     Active Substance: RISPERIDONE
     Indication: SCHIZOPHRENIA
     Route: 048
     Dates: start: 20180927
  12. LONASEN [Concomitant]
     Active Substance: BLONANSERIN
     Indication: SCHIZOPHRENIA
     Route: 048
     Dates: start: 2014, end: 20180913

REACTIONS (4)
  - Delusion [Recovering/Resolving]
  - Psychiatric symptom [Recovering/Resolving]
  - Agranulocytosis [Recovered/Resolved]
  - Septic shock [Unknown]

NARRATIVE: CASE EVENT DATE: 201809
